FAERS Safety Report 5888327-8 (Version None)
Quarter: 2008Q3

REPORT INFORMATION
  Report Type: 
  Country: None (occurrence: None)
  Receive Date: 20080918
  Receipt Date: 20080908
  Transmission Date: 20090109
  Serious: Yes (Other)
  Sender: FDA-Public Use
  Company Number: JP-SANOFI-SYNTHELABO-A01200811268

PATIENT
  Sex: Male

DRUGS (2)
  1. PENTAZOCINE LACTATE [Suspect]
     Indication: SEDATIVE THERAPY
     Dosage: UNK
     Route: 065
  2. MIDAZOLAM HCL [Suspect]
     Indication: SEDATIVE THERAPY
     Dosage: UNK
     Route: 065

REACTIONS (1)
  - PNEUMONIA ASPIRATION [None]
